FAERS Safety Report 18849048 (Version 1)
Quarter: 2021Q1

REPORT INFORMATION
  Report Type: Other
  Country: CN (occurrence: CN)
  Receive Date: 20210205
  Receipt Date: 20210205
  Transmission Date: 20210419
  Serious: Yes (Death, Other)
  Sender: FDA-Public Use
  Company Number: CN-ROCHE-2762135

PATIENT

DRUGS (17)
  1. CICLOSPORIN [Suspect]
     Active Substance: CYCLOSPORINE
     Indication: PROPHYLAXIS AGAINST GRAFT VERSUS HOST DISEASE
     Route: 065
  2. BUSULFAN. [Suspect]
     Active Substance: BUSULFAN
     Indication: CORD BLOOD TRANSPLANT THERAPY
     Dosage: ON THE 7TH TO 4TH DAY BEFORE TRANSPLANTATION
     Route: 042
  3. ALPROSTADIL. [Concomitant]
     Active Substance: ALPROSTADIL
     Dosage: 0.03 UG/KG/D
  4. SULFAMETHOXAZOLE/TRIMETHOPRIM [Concomitant]
     Active Substance: SULFAMETHOXAZOLE\TRIMETHOPRIM
  5. GAMMA GLOBULIN [Concomitant]
     Active Substance: IMMUNE GLOBULIN NOS
     Route: 042
  6. CYCLOPHOSPHAMIDE. [Suspect]
     Active Substance: CYCLOPHOSPHAMIDE
     Indication: CORD BLOOD TRANSPLANT THERAPY
     Dosage: 3?2 DAYS BEFORE TRANSPLANTATION
     Route: 042
  7. FLUDARABINE [Suspect]
     Active Substance: FLUDARABINE PHOSPHATE
     Indication: CORD BLOOD TRANSPLANT THERAPY
     Dosage: ON THE 8TH TO 5TH DAY BEFORE TRANSPLANTATION
     Route: 042
  8. POSACONAZOLE [Concomitant]
     Active Substance: POSACONAZOLE
  9. CYTARABINE. [Suspect]
     Active Substance: CYTARABINE
     Dosage: ON THE 9TH TO 8TH DAY BEFORE TRANSPLANTATION
     Route: 042
  10. LOW MOLECULAR WEIGHT HEPARIN [Concomitant]
     Active Substance: UNSPECIFIED INGREDIENT
     Dosage: 100 U/KG/DAY
  11. FOSCARNET SODIUM. [Concomitant]
     Active Substance: FOSCARNET SODIUM
  12. CYTARABINE. [Suspect]
     Active Substance: CYTARABINE
     Indication: CORD BLOOD TRANSPLANT THERAPY
     Dosage: 5 ?4 DAYS BEFORE TRANSPLANTATION
     Route: 042
  13. VORICONAZOLE. [Concomitant]
     Active Substance: VORICONAZOLE
  14. ACYCLOVIR. [Concomitant]
     Active Substance: ACYCLOVIR
     Indication: ANTIVIRAL PROPHYLAXIS
     Dosage: 10 MG/KG/D FROM THE 1ST DAY TO THE 35TH DAY AFTER TRANSPLANTATION
  15. MYCOPHENOLATE MOFETIL. [Suspect]
     Active Substance: MYCOPHENOLATE MOFETIL
     Indication: PROPHYLAXIS AGAINST GRAFT VERSUS HOST DISEASE
     Route: 065
  16. FLUCONAZOLE. [Concomitant]
     Active Substance: FLUCONAZOLE
     Indication: ANTIFUNGAL PROPHYLAXIS
     Route: 048
  17. ITRACONAZOLE. [Concomitant]
     Active Substance: ITRACONAZOLE
     Indication: ANTIFUNGAL PROPHYLAXIS
     Route: 048

REACTIONS (10)
  - Infection [Fatal]
  - Pseudomonas infection [Unknown]
  - Sepsis [Unknown]
  - Alpha haemolytic streptococcal infection [Unknown]
  - Off label use [Unknown]
  - Cytomegalovirus viraemia [Unknown]
  - Multiple organ dysfunction syndrome [Fatal]
  - Klebsiella infection [Unknown]
  - Intentional product use issue [Unknown]
  - Escherichia infection [Unknown]
